FAERS Safety Report 8767151 (Version 3)
Quarter: 2012Q4

REPORT INFORMATION
  Report Type: 
  Country: US (occurrence: US)
  Receive Date: 20120904
  Receipt Date: 20120924
  Transmission Date: 20130627
  Serious: Yes (Hospitalization)
  Sender: FDA-Public Use
  Company Number: US-ALEXION-A201201606

PATIENT
  Age: 4 None
  Sex: Female

DRUGS (1)
  1. SOLIRIS 300MG [Suspect]
     Indication: HAEMOLYTIC URAEMIC SYNDROME
     Dosage: UNK
     Route: 042
     Dates: start: 201112

REACTIONS (4)
  - Device related infection [Unknown]
  - Pulmonary congestion [Unknown]
  - Pyrexia [Unknown]
  - Influenza like illness [Unknown]
